FAERS Safety Report 15774554 (Version 3)
Quarter: 2020Q4

REPORT INFORMATION
  Report Type: Spontaneous
  Country: US (occurrence: US)
  Receive Date: 20181229
  Receipt Date: 20201016
  Transmission Date: 20210113
  Serious: Yes (Other)
  Sender: FDA-Public Use
  Company Number: US-JNJFOC-20181212845

PATIENT
  Age: 51 Year
  Sex: Female
  Weight: 68.1 kg

DRUGS (1)
  1. SIMPONI ARIA [Suspect]
     Active Substance: GOLIMUMAB
     Indication: PSORIATIC ARTHROPATHY
     Route: 042
     Dates: start: 20180719, end: 20180922

REACTIONS (5)
  - Hepatitis [Not Recovered/Not Resolved]
  - Psoriatic arthropathy [Not Recovered/Not Resolved]
  - Splenitis [Not Recovered/Not Resolved]
  - Carditis [Not Recovered/Not Resolved]
  - Drug ineffective [Unknown]
